FAERS Safety Report 4668090-9 (Version None)
Quarter: 2005Q2

REPORT INFORMATION
  Report Type: 
  Country: None (occurrence: None)
  Receive Date: 20050520
  Receipt Date: 20050426
  Transmission Date: 20051028
  Serious: Yes (Life-Threatening, Hospitalization)
  Sender: FDA-Public Use
  Company Number: JP-MERCK-0504USA05019

PATIENT
  Age: 42 Year
  Sex: Male

DRUGS (7)
  1. COSMEGEN [Suspect]
     Indication: TESTICULAR GERM CELL TUMOUR MIXED STAGE III
     Route: 042
     Dates: start: 19880101
  2. CISPLATIN [Suspect]
     Indication: TESTICULAR GERM CELL TUMOUR MIXED STAGE III
     Route: 042
     Dates: start: 19880101
  3. CYCLOPHOSPHAMIDE [Suspect]
     Indication: TESTICULAR GERM CELL TUMOUR MIXED STAGE III
     Route: 042
     Dates: start: 19880101
  4. BLEO [Suspect]
     Indication: TESTICULAR GERM CELL TUMOUR MIXED STAGE III
     Route: 042
     Dates: start: 19880101
  5. ETOPOSIDE [Suspect]
     Indication: TESTICULAR GERM CELL TUMOUR MIXED STAGE III
     Route: 065
     Dates: start: 19880101
  6. METHOTREXATE [Suspect]
     Indication: TESTICULAR GERM CELL TUMOUR MIXED STAGE III
     Route: 042
     Dates: start: 19880101
  7. VINBLASTINE SULFATE [Suspect]
     Indication: TESTICULAR GERM CELL TUMOUR MIXED STAGE III
     Route: 042
     Dates: start: 19880101

REACTIONS (3)
  - RENAL ARTERY STENOSIS [None]
  - RENAL ATROPHY [None]
  - RENAL CELL CARCINOMA STAGE UNSPECIFIED [None]
